FAERS Safety Report 5179015-4 (Version None)
Quarter: 2006Q4

REPORT INFORMATION
  Report Type: 
  Country: None (occurrence: None)
  Receive Date: 20061214
  Receipt Date: 20061214
  Transmission Date: 20070319
  Serious: Yes (Life-Threatening)
  Sender: FDA-Public Use
  Company Number: None

PATIENT
  Age: 60 Year
  Sex: Male
  Weight: 90.7194 kg

DRUGS (10)
  1. CETUXIMAB [Suspect]
     Indication: TONGUE CANCER METASTATIC
     Dosage: IV DRIP
     Route: 041
     Dates: start: 20061213, end: 20061213
  2. CELEXA [Concomitant]
  3. XANAX [Concomitant]
  4. FLUTICASONE PROPIONATE [Concomitant]
  5. GUAIFENESIN [Concomitant]
  6. TERAZOSIN HCL [Concomitant]
  7. LISINOPRIL [Concomitant]
  8. OMEPRAZOLE [Concomitant]
  9. DEXAMETHASONE [Concomitant]
  10. DIPHENHYDRAMINE HCL [Concomitant]

REACTIONS (5)
  - CARDIO-RESPIRATORY ARREST [None]
  - HYPOTENSION [None]
  - INFUSION RELATED REACTION [None]
  - LOSS OF CONSCIOUSNESS [None]
  - URTICARIA [None]
